FAERS Safety Report 4938453-2 (Version None)
Quarter: 2006Q1

REPORT INFORMATION
  Report Type: 
  Country: None (occurrence: None)
  Receive Date: 20060302
  Receipt Date: 20060220
  Transmission Date: 20060701
  Serious: Yes (Life-Threatening)
  Sender: FDA-Public Use
  Company Number: 2006EU000463

PATIENT
  Age: 32 Year
  Sex: Female

DRUGS (3)
  1. PROGRAF [Suspect]
     Indication: HEART AND LUNG TRANSPLANT
     Dosage: D
  2. MYCOPHENOLATE MOFETIL(MYCOPHENOLATE MOFETIL) [Suspect]
     Indication: HEART AND LUNG TRANSPLANT
     Dosage: D
  3. PREDNISOLONE [Suspect]
     Indication: HEART AND LUNG TRANSPLANT
     Dosage: D

REACTIONS (9)
  - CENTRAL NERVOUS SYSTEM ABSCESS [None]
  - ENDOCARDITIS ENTEROCOCCAL [None]
  - HEADACHE [None]
  - HIRSUTISM [None]
  - LUNG INFECTION PSEUDOMONAL [None]
  - REBOUND EFFECT [None]
  - RENAL INFARCT [None]
  - SPLENIC INFARCTION [None]
  - THERAPY NON-RESPONDER [None]
